FAERS Safety Report 25318094 (Version 1)
Quarter: 2025Q2

REPORT INFORMATION
  Report Type: Spontaneous
  Country: US (occurrence: None)
  Receive Date: 20250514
  Receipt Date: 20250514
  Transmission Date: 20250717
  Serious: Yes (Hospitalization)
  Sender: FDA-CTU
  Company Number: None

PATIENT
  Age: 59 Year
  Sex: Female
  Weight: 60.2 kg

DRUGS (11)
  1. LYNPARZA [Suspect]
     Active Substance: OLAPARIB
     Indication: Ovarian cancer
     Dosage: 300 MG BID ORAL?
     Route: 048
     Dates: start: 20241118, end: 20250417
  2. Gentle Lax Bisac 10mg suppositories [Concomitant]
  3. Abrazane 100 mg inj [Concomitant]
  4. Biotin 1000mcg softgels [Concomitant]
  5. Citalopram 10mg tablets [Concomitant]
  6. Compazine 10mg tablets [Concomitant]
  7. Docusate 100mg capsules [Concomitant]
  8. Emia Cream [Concomitant]
  9. Oxycodone 5mg immediate rel tabs [Concomitant]
  10. Potassium chloride 20MEQ ER tabs [Concomitant]
  11. Zarxio 300mg/0.5ml PF syr [Concomitant]

REACTIONS (2)
  - Decreased appetite [None]
  - Fatigue [None]

NARRATIVE: CASE EVENT DATE: 20250401
